FAERS Safety Report 5708770-7 (Version None)
Quarter: 2008Q2

REPORT INFORMATION
  Report Type: 
  Country: None (occurrence: None)
  Receive Date: 20080416
  Receipt Date: 20080403
  Transmission Date: 20081010
  Serious: Yes (Other)
  Sender: FDA-Public Use
  Company Number: 430006N07JPN

PATIENT
  Age: 35 Year
  Sex: Male

DRUGS (13)
  1. NOVANTRONE [Suspect]
     Dates: start: 20060324, end: 20060328
  2. MYLOTARG [Suspect]
     Dosage: 9 MG/M2, 1 IN 1 DAYS, INTRAVENOUS (NOT OTHERWISE SPECIFIED)
     Route: 042
     Dates: start: 20060111, end: 20060111
  3. MYLOTARG [Suspect]
     Dosage: 9 MG/M2, 1 IN 1 DAYS, INTRAVENOUS (NOT OTHERWISE SPECIFIED)
     Route: 042
     Dates: start: 20060125, end: 20060125
  4. FLUCONAZOLE [Concomitant]
  5. ROXATIDINE ACETATE HCL [Concomitant]
  6. REBAMIPIDE [Concomitant]
  7. ALLOPURINOL [Concomitant]
  8. BACILLUS SUBTILIS [Concomitant]
  9. CYTARABINE [Suspect]
     Dosage: INTRAVENOUS
     Route: 042
     Dates: start: 20060324, end: 20060328
  10. ETOPOSIDE [Suspect]
     Dosage: INTRAVENOUS
     Route: 042
     Dates: start: 20060324, end: 20060328
  11. ACETAMINOPHEN [Concomitant]
  12. DIPHENHYDRAMINE HCL [Concomitant]
  13. HYDROCORTISONE SODIUM SUCCINATE [Concomitant]

REACTIONS (4)
  - DISEASE PROGRESSION [None]
  - DRUG INEFFECTIVE [None]
  - SEPSIS [None]
  - WEIGHT INCREASED [None]
